FAERS Safety Report 8427840-6 (Version None)
Quarter: 2012Q2

REPORT INFORMATION
  Report Type: 
  Country: None (occurrence: None)
  Receive Date: 20120611
  Receipt Date: 20110930
  Transmission Date: 20120825
  Serious: No
  Sender: FDA-Public Use
  Company Number: US-BAYER-2011-093415

PATIENT
  Age: 11 Year
  Sex: Female

DRUGS (1)
  1. MENOSTAR [Suspect]
     Indication: BLOOD GROWTH HORMONE ABNORMAL

REACTIONS (2)
  - APPLICATION SITE IRRITATION [None]
  - SKIN IRRITATION [None]
